FAERS Safety Report 6199460-8 (Version None)
Quarter: 2009Q2

REPORT INFORMATION
  Report Type: 
  Country: None (occurrence: None)
  Receive Date: 20090522
  Receipt Date: 20090512
  Transmission Date: 20091009
  Serious: Yes (Death)
  Sender: FDA-Public Use
  Company Number: CN-PFIZER INC-2009212496

PATIENT
  Age: 39 Year

DRUGS (3)
  1. SUNITINIB MALATE [Suspect]
     Indication: HEPATIC NEOPLASM MALIGNANT
     Dosage: 37.5 MG, 1X/DAY
     Route: 048
     Dates: start: 20090410, end: 20090508
  2. GLUTATHIONE [Concomitant]
     Dosage: 50 MG, 3X/DAY
     Dates: start: 20090104, end: 20090508
  3. URSODEOXYCHOLIC ACID [Concomitant]
     Dosage: 250 MG, 2X/DAY
     Dates: start: 20090507, end: 20090508

REACTIONS (1)
  - TUMOUR HAEMORRHAGE [None]
